FAERS Safety Report 9470108 (Version 1)
Quarter: 2013Q3

REPORT INFORMATION
  Report Type: Spontaneous
  Country: US (occurrence: US)
  Receive Date: 20130822
  Receipt Date: 20130822
  Transmission Date: 20140515
  Serious: Yes (Other)
  Sender: FDA-Public Use
  Company Number: US-UCBSA-095357

PATIENT
  Age: 60 Year
  Sex: Female

DRUGS (6)
  1. VIMPAT [Suspect]
     Dosage: 2 AND A HALF 150 MG TABLETS
     Route: 048
     Dates: start: 2011
  2. TOPIRAMATE [Concomitant]
  3. XANAX [Concomitant]
  4. FOLIC ACID [Concomitant]
  5. LEXAPRO [Concomitant]
  6. HYDROCODONE [Concomitant]
     Indication: PAIN

REACTIONS (2)
  - Bradycardia [Unknown]
  - Overdose [Unknown]
